FAERS Safety Report 18422487 (Version 3)
Quarter: 2021Q1

REPORT INFORMATION
  Report Type: Report from Study
  Country: BR (occurrence: BR)
  Receive Date: 20201023
  Receipt Date: 20210305
  Transmission Date: 20210419
  Serious: Yes (Disabling, Other)
  Sender: FDA-Public Use
  Company Number: BR-EMD SERONO-9101897

PATIENT
  Age: 42 Year
  Sex: Female

DRUGS (2)
  1. REBIF [Suspect]
     Active Substance: INTERFERON BETA-1A
     Indication: MULTIPLE SCLEROSIS
     Route: 058
     Dates: start: 20131127, end: 20191002
  2. BIO?MANGUINHOS BETAINTERFERONA 1A 22 MCG [Suspect]
     Active Substance: INTERFERON BETA-1A
     Indication: MULTIPLE SCLEROSIS
     Dosage: THERAPY START ? 02?OCT?2019
     Route: 058

REACTIONS (19)
  - Choking [Not Recovered/Not Resolved]
  - Dysstasia [Unknown]
  - Speech disorder [Recovering/Resolving]
  - Decubitus ulcer [Unknown]
  - Loss of personal independence in daily activities [Unknown]
  - Crying [Not Recovered/Not Resolved]
  - Emotional disorder [Not Recovered/Not Resolved]
  - Confusional state [Not Recovered/Not Resolved]
  - Motor dysfunction [Recovering/Resolving]
  - Wheelchair user [Unknown]
  - Bedridden [Unknown]
  - Memory impairment [Not Recovered/Not Resolved]
  - Condition aggravated [Recovering/Resolving]
  - Feeding disorder [Recovering/Resolving]
  - Muscular weakness [Unknown]
  - Dysphagia [Not Recovered/Not Resolved]
  - Asthenia [Unknown]
  - Depression [Not Recovered/Not Resolved]
  - Therapeutic response decreased [Not Recovered/Not Resolved]

NARRATIVE: CASE EVENT DATE: 201907
